FAERS Safety Report 21609993 (Version 1)
Quarter: 2022Q4

REPORT INFORMATION
  Report Type: Report from Study
  Country: US (occurrence: US)
  Receive Date: 20221117
  Receipt Date: 20221117
  Transmission Date: 20230113
  Serious: No
  Sender: FDA-Public Use
  Company Number: US-ABBVIE-4155788

PATIENT
  Sex: Female

DRUGS (2)
  1. HUMIRA [Suspect]
     Active Substance: ADALIMUMAB
     Indication: Hidradenitis
     Dosage: 160 MG DAY 1, 80 MG DAY 15, THEN 40 MG EVERY 14 DAYS
     Route: 058
  2. HUMIRA [Suspect]
     Active Substance: ADALIMUMAB
     Dosage: 80MG/0.8ML
     Route: 058
     Dates: start: 202203

REACTIONS (2)
  - Pain of skin [Unknown]
  - Pruritus [Unknown]
